FAERS Safety Report 5847431-0 (Version None)
Quarter: 2008Q3

REPORT INFORMATION
  Report Type: 
  Country: None (occurrence: None)
  Receive Date: 20080815
  Receipt Date: 20080806
  Transmission Date: 20090109
  Serious: Yes (Hospitalization)
  Sender: FDA-Public Use
  Company Number: NL-MERCK-0608NLD00026

PATIENT
  Age: 75 Year
  Sex: Female

DRUGS (10)
  1. SINGULAIR [Suspect]
     Indication: ASTHMA
     Route: 048
     Dates: start: 20060311, end: 20060814
  2. OMEPRAZOLE [Concomitant]
     Route: 048
     Dates: start: 19990518
  3. FUROSEMIDE [Concomitant]
     Route: 048
     Dates: start: 20050712
  4. CARVEDILOL [Concomitant]
     Route: 048
     Dates: start: 20050712
  5. RAMIPRIL [Concomitant]
     Route: 048
     Dates: start: 20050712
  6. DIGOXIN [Concomitant]
     Route: 048
     Dates: start: 20060808
  7. PHENPROCOUMON [Concomitant]
     Route: 048
     Dates: start: 20050712
  8. ATORVASTATIN CALCIUM [Concomitant]
     Route: 048
     Dates: start: 20060502, end: 20060712
  9. ISOSORBIDE MONONITRATE [Concomitant]
     Route: 048
  10. TIOTROPIUM BROMIDE [Concomitant]

REACTIONS (1)
  - ALLERGIC GRANULOMATOUS ANGIITIS [None]
